FAERS Safety Report 7472487-1 (Version None)
Quarter: 2011Q2

REPORT INFORMATION
  Report Type: 
  Country: None (occurrence: None)
  Receive Date: 20110511
  Receipt Date: 20110403
  Transmission Date: 20111010
  Serious: Yes (Hospitalization, Other)
  Sender: FDA-Public Use
  Company Number: US-BAYER-201039886NA

PATIENT
  Age: 21 Year
  Sex: Female
  Weight: 97.506 kg

DRUGS (7)
  1. LOVENOX [Concomitant]
     Dosage: 100 MG, BID
     Route: 058
     Dates: start: 20091215
  2. YAZ [Suspect]
     Indication: PRODUCT USED FOR UNKNOWN INDICATION
     Dosage: UNK UNK, QD
     Route: 048
     Dates: start: 20090318, end: 20091201
  3. ZOFRAN [Concomitant]
     Indication: NAUSEA
     Dosage: 4 MG, Q4HR
     Route: 048
  4. PERCOCET [Concomitant]
     Indication: PAIN
     Dosage: UNK
     Route: 048
     Dates: start: 20091215
  5. ACETAMINOPHEN [Concomitant]
     Indication: PAIN
     Dosage: UNK
     Route: 048
     Dates: start: 20091215
  6. COUMADIN [Concomitant]
     Dosage: 5 MG, QD
     Route: 048
     Dates: start: 20091215
  7. YAZ [Suspect]
     Dosage: UNK
     Dates: start: 20090501, end: 20091201

REACTIONS (1)
  - INTRACRANIAL VENOUS SINUS THROMBOSIS [None]
